FAERS Safety Report 6085470-8 (Version None)
Quarter: 2009Q1

REPORT INFORMATION
  Report Type: 
  Country: None (occurrence: None)
  Receive Date: 20090217
  Receipt Date: 20090210
  Transmission Date: 20090719
  Serious: Yes (Death, Other)
  Sender: FDA-Public Use
  Company Number: WAES 0901ESP00057

PATIENT
  Age: 70 Year
  Sex: Male

DRUGS (6)
  1. CANCIDAS [Suspect]
     Indication: CANDIDIASIS
     Dosage: 70 MG 1X, IV; 50 MG DAILY; IV
     Route: 042
     Dates: start: 20041027, end: 20041027
  2. CANCIDAS [Suspect]
     Indication: ENDOCARDITIS
     Dosage: 70 MG 1X, IV; 50 MG DAILY; IV
     Route: 042
     Dates: start: 20041027, end: 20041027
  3. CANCIDAS [Suspect]
     Indication: CANDIDIASIS
     Dosage: 70 MG 1X, IV; 50 MG DAILY; IV
     Route: 042
     Dates: start: 20041028, end: 20041126
  4. CANCIDAS [Suspect]
     Indication: ENDOCARDITIS
     Dosage: 70 MG 1X, IV; 50 MG DAILY; IV
     Route: 042
     Dates: start: 20041028, end: 20041126
  5. RIFAMPICIN [Suspect]
     Indication: STAPHYLOCOCCAL INFECTION
     Dates: start: 20041007, end: 20041110
  6. FLUCONAZOLE [Concomitant]

REACTIONS (11)
  - ANURIA [None]
  - CELLULITIS [None]
  - CLOSTRIDIUM DIFFICILE COLITIS [None]
  - CONTINUOUS HAEMODIAFILTRATION [None]
  - ENDOCARDITIS [None]
  - MULTI-ORGAN FAILURE [None]
  - PNEUMONIA [None]
  - RESPIRATORY DISORDER [None]
  - SKIN PAPILLOMA [None]
  - SYSTEMIC CANDIDA [None]
  - TRANSAMINASES INCREASED [None]
